FAERS Safety Report 5851362-X (Version None)
Quarter: 2008Q3

REPORT INFORMATION
  Report Type: 
  Country: None (occurrence: None)
  Receive Date: 20080820
  Receipt Date: 20080812
  Transmission Date: 20090109
  Serious: Yes (Other)
  Sender: FDA-Public Use
  Company Number: US-MERCK-0808USA02380

PATIENT
  Age: 75 Year
  Sex: Female

DRUGS (7)
  1. PRINIVIL [Suspect]
     Route: 048
  2. GLUCOPHAGE [Suspect]
     Route: 065
  3. REVATIO [Suspect]
     Indication: PULMONARY ARTERIAL HYPERTENSION
     Route: 065
  4. ASPIRIN [Suspect]
     Route: 065
  5. ALLOPURINOL [Suspect]
     Route: 065
  6. GLYBURIDE [Suspect]
     Route: 065
  7. PRILOSEC [Suspect]
     Route: 065

REACTIONS (1)
  - DEAFNESS UNILATERAL [None]
